FAERS Safety Report 12561754 (Version 2)
Quarter: 2016Q3

REPORT INFORMATION
  Report Type: Spontaneous
  Country: DE (occurrence: DE)
  Receive Date: 20160715
  Receipt Date: 20160826
  Transmission Date: 20161109
  Serious: Yes (Other)
  Sender: FDA-Public Use
  Company Number: DE-BAYER-2016-133255

PATIENT
  Age: 74 Year
  Sex: Male
  Weight: 77 kg

DRUGS (2)
  1. CIPROBAY [Suspect]
     Active Substance: CIPROFLOXACIN
     Indication: CYSTITIS
     Dosage: 500 MG, BID
     Route: 048
     Dates: start: 20160314
  2. BROMAZANIL [Suspect]
     Active Substance: BROMAZEPAM
     Dosage: 1.5 MG, QD

REACTIONS (1)
  - Lens dislocation [Recovered/Resolved with Sequelae]

NARRATIVE: CASE EVENT DATE: 20160315
